FAERS Safety Report 22520250 (Version 1)
Quarter: 2023Q2

REPORT INFORMATION
  Report Type: Spontaneous
  Country: CN (occurrence: None)
  Receive Date: 20230605
  Receipt Date: 20230605
  Transmission Date: 20230722
  Serious: Yes (Hospitalization)
  Sender: FDA-Public Use
  Company Number: CN-Merck Healthcare KGaA-9405123

PATIENT
  Age: 32 Year
  Sex: Female
  Weight: 57 kg

DRUGS (9)
  1. LUVERIS [Suspect]
     Active Substance: LUTROPIN ALFA
     Indication: In vitro fertilisation
     Route: 058
     Dates: start: 20230426, end: 20230502
  2. LUVERIS [Suspect]
     Active Substance: LUTROPIN ALFA
     Indication: Ovulation induction
  3. MENOTROPINS [Suspect]
     Active Substance: MENOTROPINS
     Indication: In vitro fertilisation
     Route: 030
     Dates: start: 20230421, end: 20230502
  4. MENOTROPINS [Suspect]
     Active Substance: MENOTROPINS
     Indication: Ovulation induction
  5. UROFOLLITROPIN [Suspect]
     Active Substance: UROFOLLITROPIN
     Indication: In vitro fertilisation
     Route: 030
     Dates: start: 20230421, end: 20230502
  6. UROFOLLITROPIN [Suspect]
     Active Substance: UROFOLLITROPIN
     Indication: Ovulation induction
  7. CHORIONIC GONADOTROPHIN [Suspect]
     Active Substance: CHORIOGONADOTROPIN ALFA
     Indication: In vitro fertilisation
     Route: 030
     Dates: start: 20230502, end: 20230502
  8. CHORIONIC GONADOTROPHIN [Suspect]
     Active Substance: CHORIOGONADOTROPIN ALFA
     Indication: Ovulation induction
  9. SODIUM CHLORIDE [Concomitant]
     Active Substance: SODIUM CHLORIDE
     Indication: Vehicle solution use
     Route: 030
     Dates: start: 20230502, end: 20230502

REACTIONS (6)
  - Abdominal distension [Recovering/Resolving]
  - Abdominal pain [Recovering/Resolving]
  - Oliguria [Recovering/Resolving]
  - Dyspnoea [Recovering/Resolving]
  - Hepatic function abnormal [Recovering/Resolving]
  - Nausea [Recovering/Resolving]

NARRATIVE: CASE EVENT DATE: 20230504
